FAERS Safety Report 9336593 (Version 2)
Quarter: 2014Q1

REPORT INFORMATION
  Report Type: Spontaneous
  Country: US (occurrence: US)
  Receive Date: 20130607
  Receipt Date: 20140228
  Transmission Date: 20141002
  Serious: Yes (Disabling)
  Sender: FDA-Public Use
  Company Number: US-BAYER-2013-066176

PATIENT
  Age: 27 Year
  Sex: Female

DRUGS (2)
  1. MIRENA [Suspect]
     Dosage: 20 MCG/24HR, CONT
     Route: 015
     Dates: start: 20110621, end: 201106
  2. MIRENA [Suspect]
     Dosage: 20 MCG/24HR, CONT
     Route: 015
     Dates: start: 20110621, end: 201106

REACTIONS (18)
  - Medical device complication [None]
  - Procedural pain [None]
  - Device expulsion [None]
  - Abdominal pain lower [None]
  - Alopecia [None]
  - Amnesia [None]
  - Libido decreased [None]
  - Dysmenorrhoea [None]
  - Weight increased [None]
  - Arthritis [None]
  - Injury [None]
  - Pain [None]
  - General physical health deterioration [None]
  - Deformity [None]
  - Emotional distress [None]
  - Anxiety [None]
  - Anhedonia [None]
  - Pain [None]
